FAERS Safety Report 8130146-6 (Version None)
Quarter: 2012Q1

REPORT INFORMATION
  Report Type: 
  Country: None (occurrence: None)
  Receive Date: 20120210
  Receipt Date: 20120203
  Transmission Date: 20120608
  Serious: No
  Sender: FDA-Public Use
  Company Number: US-B.I. PHARMACEUTICALS,INC./RIDGEFIELD-2012-BP-02161BP

PATIENT
  Sex: Female

DRUGS (4)
  1. LYRICA [Concomitant]
     Indication: BACK PAIN
     Dosage: 300 MG
     Route: 048
     Dates: start: 20090101
  2. ASPIRIN [Concomitant]
     Indication: ROUTINE HEALTH MAINTENANCE
     Dosage: 81 MG
     Route: 048
  3. ZANTAC [Suspect]
  4. ZANTAC [Suspect]
     Indication: DYSPEPSIA
     Route: 048
     Dates: start: 20120103, end: 20120103

REACTIONS (1)
  - GLOSSODYNIA [None]
